FAERS Safety Report 12517055 (Version 1)
Quarter: 2016Q2

REPORT INFORMATION
  Report Type: Spontaneous
  Country: US (occurrence: US)
  Receive Date: 20160630
  Receipt Date: 20160630
  Transmission Date: 20160815
  Serious: No
  Sender: FDA-Public Use
  Company Number: US-PFIZER INC-2016287419

PATIENT
  Sex: Female

DRUGS (1)
  1. WATER BACTERIOSTATIC [Suspect]
     Active Substance: WATER
     Dosage: UNK

REACTIONS (3)
  - Swelling face [Not Recovered/Not Resolved]
  - Erythema [Not Recovered/Not Resolved]
  - Muscle rigidity [Unknown]

NARRATIVE: CASE EVENT DATE: 20160601
